FAERS Safety Report 9267988 (Version 1)
Quarter: 2013Q2

REPORT INFORMATION
  Report Type: Spontaneous
  Country: US (occurrence: US)
  Receive Date: 20130502
  Receipt Date: 20130502
  Transmission Date: 20140414
  Serious: No
  Sender: FDA-Public Use
  Company Number: US-ALEXION-A201201247

PATIENT
  Sex: Male
  Weight: 58 kg

DRUGS (6)
  1. SOLIRIS 300MG [Suspect]
     Indication: PAROXYSMAL NOCTURNAL HAEMOGLOBINURIA
     Dosage: 600 MG, QW
     Route: 042
  2. SOLIRIS 300MG [Suspect]
     Dosage: 900 MG, Q2W
     Route: 042
  3. MENINGOCOCCAL VACCINE [Concomitant]
     Indication: IMMUNISATION
     Dosage: UNK
     Dates: start: 20120301, end: 20120301
  4. PREDNISONE [Concomitant]
     Dosage: 2.5 MG, QD
     Route: 048
  5. PREDNISONE [Concomitant]
     Dosage: 5 MG, Q OTHER DAY
     Route: 048
  6. CYCLOSPORINE [Concomitant]
     Dosage: 100 MG, QD
     Route: 048

REACTIONS (1)
  - Musculoskeletal stiffness [Not Recovered/Not Resolved]
